FAERS Safety Report 10211174 (Version 1)
Quarter: 2014Q2

REPORT INFORMATION
  Report Type: Spontaneous
  Country: US (occurrence: US)
  Receive Date: 20140602
  Receipt Date: 20140602
  Transmission Date: 20141212
  Serious: No
  Sender: FDA-Public Use
  Company Number: US-ABBVIE-14P-163-1210139-00

PATIENT
  Age: 20 Year
  Sex: Male
  Weight: 61.29 kg

DRUGS (2)
  1. MARINOL [Suspect]
     Indication: NAUSEA
     Dosage: AS NEEDED
     Dates: start: 201402
  2. CHEMOTHERAPY [Concomitant]
     Indication: OSTEOSARCOMA

REACTIONS (1)
  - Drug ineffective [Not Recovered/Not Resolved]
